FAERS Safety Report 10245022 (Version 1)
Quarter: 2014Q2

REPORT INFORMATION
  Report Type: Spontaneous
  Country: US (occurrence: US)
  Receive Date: 20140618
  Receipt Date: 20140618
  Transmission Date: 20141212
  Serious: No
  Sender: FDA-Public Use
  Company Number: US-GALDERMA-US14001593

PATIENT
  Age: 46 Year
  Sex: Female

DRUGS (4)
  1. MIRVASO (BRIMONIDINE) TOPICAL GEL, 0.33% [Suspect]
     Indication: ROSACEA
     Dosage: 0.33%
     Route: 061
     Dates: start: 201402, end: 201402
  2. METROCREAM (METRONIDAZOLE) TOPICAL CREAM, 0.75% [Concomitant]
     Indication: ROSACEA
     Dosage: 0.75
     Route: 061
  3. VANICREAM [Concomitant]
     Indication: ROSACEA
     Route: 061
  4. VANICREAM [Concomitant]
     Indication: DRY SKIN

REACTIONS (3)
  - Rebound effect [Recovered/Resolved]
  - Hyperaemia [Recovered/Resolved]
  - Condition aggravated [Recovered/Resolved]
